FAERS Safety Report 8027376-0 (Version None)
Quarter: 2012Q1

REPORT INFORMATION
  Report Type: 
  Country: None (occurrence: None)
  Receive Date: 20120106
  Receipt Date: 20111229
  Transmission Date: 20120608
  Serious: Yes (Hospitalization, Disabling)
  Sender: FDA-Public Use
  Company Number: GB-MILLENNIUM PHARMACEUTICALS, INC.-2011-06746

PATIENT

DRUGS (1)
  1. VELCADE [Suspect]
     Indication: MULTIPLE MYELOMA
     Dosage: UNK
     Route: 042
     Dates: start: 20101001, end: 20101001

REACTIONS (9)
  - POSTURAL REFLEX IMPAIRMENT [None]
  - HALLUCINATION, VISUAL [None]
  - TEARFULNESS [None]
  - ABNORMAL BEHAVIOUR [None]
  - BRADYKINESIA [None]
  - COGNITIVE DISORDER [None]
  - MOBILITY DECREASED [None]
  - DEMENTIA [None]
  - GAIT DISTURBANCE [None]
